FAERS Safety Report 4680752-6 (Version None)
Quarter: 2005Q2

REPORT INFORMATION
  Report Type: 
  Country: None (occurrence: None)
  Receive Date: 20050603
  Receipt Date: 20050524
  Transmission Date: 20051028
  Serious: Yes (Other)
  Sender: FDA-Public Use
  Company Number: GB-JNJFOC-20050506112

PATIENT
  Age: 73 Year
  Sex: Female

DRUGS (2)
  1. REMICADE [Suspect]
     Indication: RHEUMATOID ARTHRITIS
     Route: 042
  2. ALENDRONATE SODIUM [Concomitant]
     Indication: OSTEOPOROSIS
     Route: 049

REACTIONS (1)
  - BASAL CELL CARCINOMA [None]
